FAERS Safety Report 10227227 (Version 1)
Quarter: 2014Q2

REPORT INFORMATION
  Report Type: Report from Study
  Country: US (occurrence: US)
  Receive Date: 20140610
  Receipt Date: 20140610
  Transmission Date: 20141212
  Serious: Yes (Other)
  Sender: FDA-Public Use
  Company Number: US-ABBVIE-14P-163-1243183-00

PATIENT
  Age: 70 Year
  Sex: Female

DRUGS (5)
  1. HUMIRA [Suspect]
     Indication: RHEUMATOID ARTHRITIS
     Dates: start: 2004, end: 201311
  2. HUMIRA [Suspect]
     Dates: start: 201311
  3. PLAQUENIL [Concomitant]
     Indication: PRODUCT USED FOR UNKNOWN INDICATION
  4. TRAZODONE [Concomitant]
     Indication: RHEUMATOID ARTHRITIS
  5. MONTELUKAST [Concomitant]
     Indication: HYPERSENSITIVITY

REACTIONS (9)
  - Spinal column stenosis [Unknown]
  - Spinal column stenosis [Unknown]
  - Injection site pain [Not Recovered/Not Resolved]
  - Joint swelling [Unknown]
  - Mobility decreased [Unknown]
  - Joint warmth [Unknown]
  - Muscle disorder [Unknown]
  - Device issue [Unknown]
  - Inappropriate schedule of drug administration [Unknown]
